FAERS Safety Report 4808536-6 (Version None)
Quarter: 2005Q4

REPORT INFORMATION
  Report Type: 
  Country: None (occurrence: None)
  Receive Date: 20051021
  Receipt Date: 20040630
  Transmission Date: 20060501
  Serious: Yes (Hospitalization)
  Sender: FDA-Public Use
  Company Number: FR_040604377

PATIENT
  Sex: Male
  Weight: 78 kg

DRUGS (1)
  1. ZYPREXA [Suspect]
     Indication: PARANOIA
     Dosage: 10 MG DAY
     Dates: start: 20040201

REACTIONS (3)
  - HAEMOPTYSIS [None]
  - PLEURAL EFFUSION [None]
  - PULMONARY EMBOLISM [None]
